FAERS Safety Report 23532381 (Version 4)
Quarter: 2025Q2

REPORT INFORMATION
  Report Type: Spontaneous
  Country: US (occurrence: US)
  Receive Date: 20240216
  Receipt Date: 20250410
  Transmission Date: 20250717
  Serious: No
  Sender: VERTEX
  Company Number: US-VERTEX PHARMACEUTICALS-2024-002468

PATIENT
  Age: 35 Year
  Sex: Female

DRUGS (1)
  1. TRIKAFTA [Suspect]
     Active Substance: ELEXACAFTOR\IVACAFTOR\TEZACAFTOR
     Indication: Cystic fibrosis
     Route: 048
     Dates: start: 2022

REACTIONS (2)
  - Haemorrhoids [Not Recovered/Not Resolved]
  - Exposure during pregnancy [Unknown]
